FAERS Safety Report 5252598-1 (Version None)
Quarter: 2007Q1

REPORT INFORMATION
  Report Type: 
  Country: None (occurrence: None)
  Receive Date: 20070301
  Receipt Date: 20070223
  Transmission Date: 20070707
  Serious: Yes (Hospitalization)
  Sender: FDA-Public Use
  Company Number: GR-JNJFOC-20070205930

PATIENT
  Age: 72 Year
  Sex: Female
  Weight: 60 kg

DRUGS (6)
  1. REMICADE [Suspect]
     Indication: INFLAMMATORY BOWEL DISEASE
     Route: 042
  2. REMICADE [Suspect]
     Indication: SACROILIITIS
     Route: 042
  3. TILDIEM [Concomitant]
     Route: 048
  4. MEDROL [Concomitant]
     Route: 048
  5. EFFEXOR [Concomitant]
     Route: 048
  6. PERSANTIN [Concomitant]
     Route: 048

REACTIONS (4)
  - MALAISE [None]
  - PYREXIA [None]
  - TUBERCULOSIS [None]
  - TUBERCULOSIS SKIN TEST POSITIVE [None]
